FAERS Safety Report 15473559 (Version 2)
Quarter: 2018Q4

REPORT INFORMATION
  Report Type: Report from Study
  Country: MY (occurrence: MY)
  Receive Date: 20181008
  Receipt Date: 20181012
  Transmission Date: 20190205
  Serious: Yes (Death)
  Sender: FDA-Public Use
  Company Number: MY-ROCHE-2137005

PATIENT
  Age: 77 Year
  Sex: Male
  Weight: 43 kg

DRUGS (3)
  1. CEFUROXIME. [Concomitant]
     Active Substance: CEFUROXIME
     Indication: URINARY TRACT INFECTION
     Route: 048
     Dates: start: 20180809, end: 20180814
  2. ATEZOLIZUMAB. [Suspect]
     Active Substance: ATEZOLIZUMAB
     Indication: NON-SMALL CELL LUNG CANCER
     Dosage: DATE OF MOST RECENT DOSE OF ATEZOLIZUMAB OF 1200 MG PRIOR TO AE ONSET 3/APR/2018 AT 14:30
     Route: 042
     Dates: start: 20180201
  3. LORATADINE. [Concomitant]
     Active Substance: LORATADINE
     Indication: DRY SKIN
     Route: 048
     Dates: start: 20180424

REACTIONS (1)
  - Hyperthyroidism [Recovered/Resolved]

NARRATIVE: CASE EVENT DATE: 20180423
